FAERS Safety Report 25360815 (Version 1)
Quarter: 2025Q2

REPORT INFORMATION
  Report Type: Spontaneous
  Country: CN (occurrence: CN)
  Receive Date: 20250527
  Receipt Date: 20250527
  Transmission Date: 20250716
  Serious: No
  Sender: MERCK SHARP & DOHME LLC
  Company Number: CN-009507513-2287959

PATIENT
  Age: 59 Year
  Sex: Female

DRUGS (3)
  1. MOLNUPIRAVIR [Suspect]
     Active Substance: MOLNUPIRAVIR
     Indication: COVID-19 pneumonia
     Route: 048
  2. MEROPENEM [Concomitant]
     Active Substance: MEROPENEM
     Indication: COVID-19 pneumonia
  3. DEXAMETHASONE [Concomitant]
     Active Substance: DEXAMETHASONE
     Indication: COVID-19 pneumonia

REACTIONS (1)
  - Product use in unapproved indication [Unknown]
